FAERS Safety Report 14582078 (Version 2)
Quarter: 2019Q1

REPORT INFORMATION
  Report Type: Report from Study
  Country: US (occurrence: US)
  Receive Date: 20180228
  Receipt Date: 20190215
  Transmission Date: 20190417
  Serious: Yes (Death, Life-Threatening, Hospitalization, Disabling, Other)
  Sender: FDA-Public Use
  Company Number: US-PFIZER INC-2018073142

PATIENT
  Age: 14 Year
  Sex: Female
  Weight: 49.1 kg

DRUGS (18)
  1. TOBRAMYCIN. [Suspect]
     Active Substance: TOBRAMYCIN
     Dosage: 48 MG, QD
     Route: 042
     Dates: start: 20170922, end: 20170927
  2. AMPHOTERICIN B. [Suspect]
     Active Substance: AMPHOTERICIN B
     Indication: FUNGAL INFECTION
     Dosage: 240 MG, QD
     Route: 042
     Dates: start: 20170921, end: 20170925
  3. FUROSEMIDE. [Concomitant]
     Active Substance: FUROSEMIDE
     Dosage: UNK
     Dates: start: 20170905
  4. TOBRAMYCIN. [Suspect]
     Active Substance: TOBRAMYCIN
     Indication: SEPSIS
     Dosage: 120 MG, QD
     Route: 042
     Dates: start: 20170921, end: 20170921
  5. POSACONAZOLE [Suspect]
     Active Substance: POSACONAZOLE
     Indication: PNEUMONIA FUNGAL
     Dosage: 300 MG, UNK
     Route: 042
     Dates: start: 20170718, end: 20171015
  6. ESCITALOPRAM [Concomitant]
     Active Substance: ESCITALOPRAM OXALATE
     Dosage: UNK
     Dates: start: 20170907
  7. ONDANSETRON [Concomitant]
     Active Substance: ONDANSETRON
     Dosage: UNK
     Dates: start: 20170913
  8. DIPHENHYDRAMINE. [Concomitant]
     Active Substance: DIPHENHYDRAMINE
     Dosage: UNK
     Dates: start: 20170911
  9. HYDROCORTISONE. [Concomitant]
     Active Substance: HYDROCORTISONE
     Dosage: UNK
     Dates: start: 20170908
  10. URSODIOL. [Concomitant]
     Active Substance: URSODIOL
     Dosage: UNK
     Dates: start: 20170610
  11. MESNA. [Concomitant]
     Active Substance: MESNA
     Dosage: UNK
     Dates: start: 20170915, end: 20170916
  12. FOSCARNET [Concomitant]
     Active Substance: FOSCARNET
     Dosage: UNK
     Dates: start: 20170913
  13. APREPITANT. [Concomitant]
     Active Substance: APREPITANT
     Dosage: UNK
     Dates: start: 20170914, end: 20170916
  14. ATOVAQUONE. [Concomitant]
     Active Substance: ATOVAQUONE
     Dosage: UNK
     Dates: start: 20170621
  15. LORAZEPAM. [Concomitant]
     Active Substance: LORAZEPAM
     Dosage: UNK
     Dates: start: 20170914
  16. BRINCIDOFOVIR [Suspect]
     Active Substance: BRINCIDOFOVIR
     Indication: ADENOVIRUS INFECTION
     Dosage: 95 MG, BIW
     Route: 048
     Dates: start: 20170901, end: 20170918
  17. CYCLOPHOSPHAMIDE. [Suspect]
     Active Substance: CYCLOPHOSPHAMIDE
     Indication: CHEMOTHERAPY
     Dosage: 2400 MG, UNK
     Route: 042
     Dates: start: 20170915, end: 20170916
  18. CASPOFUNGIN [Concomitant]
     Active Substance: CASPOFUNGIN
     Dosage: UNK
     Dates: start: 20170914

REACTIONS (4)
  - Acute kidney injury [Not Recovered/Not Resolved]
  - Hyperbilirubinaemia [Not Recovered/Not Resolved]
  - Diarrhoea [Not Recovered/Not Resolved]
  - Hypotension [Not Recovered/Not Resolved]

NARRATIVE: CASE EVENT DATE: 20170916
